FAERS Safety Report 11892410 (Version 1)
Quarter: 2016Q1

REPORT INFORMATION
  Report Type: Spontaneous
  Country: AU (occurrence: AU)
  Receive Date: 20160106
  Receipt Date: 20160106
  Transmission Date: 20160526
  Serious: Yes (Life-Threatening, Hospitalization)
  Sender: FDA-Public Use
  Company Number: AU-SA-2016SA000499

PATIENT
  Age: 82 Year
  Sex: Male

DRUGS (4)
  1. ALTEPLASE [Suspect]
     Active Substance: ALTEPLASE
     Dosage: 10 MG IN 50 ML OF SALINE, 12-HOURLY
     Route: 034
  2. ENOXAPARIN SODIUM. [Suspect]
     Active Substance: ENOXAPARIN SODIUM
     Indication: PULMONARY EMBOLISM
     Route: 058
  3. TAZOBACTAM/PIPERACILLIN [Concomitant]
     Indication: ANTIBIOTIC THERAPY
     Route: 042
  4. DORNASE ALFA [Suspect]
     Active Substance: DORNASE ALFA
     Dosage: 5 MG IN 50 ML OF SALINE 12-HOURLY
     Route: 034

REACTIONS (9)
  - Haemothorax [Recovered/Resolved]
  - Respiratory distress [Recovered/Resolved]
  - Hypotension [Recovered/Resolved]
  - Pneumothorax [Recovered/Resolved]
  - Hypovolaemic shock [Recovered/Resolved]
  - Haemoglobin decreased [Recovered/Resolved]
  - Hepatic function abnormal [Unknown]
  - Renal impairment [Unknown]
  - Chest X-ray abnormal [Recovered/Resolved]
